FAERS Safety Report 9549544 (Version 1)
Quarter: 2013Q3

REPORT INFORMATION
  Report Type: Spontaneous
  Country: US (occurrence: None)
  Receive Date: 20130719
  Receipt Date: 20130719
  Transmission Date: 20140515
  Serious: Yes (Hospitalization)
  Sender: FDA-Public Use
  Company Number: 2013BAX002784

PATIENT
  Age: 66 Year
  Sex: Male

DRUGS (16)
  1. CYCLOPHOSPHAMIDE [Suspect]
     Indication: THYMOMA
  2. CETUXIMAB [Suspect]
     Indication: THYMOMA
  3. DOXORUBICIN HCL [Suspect]
     Indication: THYMOMA
  4. CISPLATIN [Suspect]
     Indication: THYMOMA
  5. ALCOMETASONE DIPROPIONATE(ALCLOMETASONE DIPROPIONATE) [Concomitant]
  6. APREPITANT(APREPITANT) [Concomitant]
  7. ASPIRIN(ACETYLSALICYLIC ACID) [Concomitant]
  8. CIPROFLOXACIN(CIPROFLOXACIN) [Concomitant]
  9. DEXAMETHASONE(DEXAMETHASONE) [Concomitant]
  10. DOCUSATE SODIUM (DOCUSATE SODIUM) [Concomitant]
  11. LOSARTAN POTASSIUM(LOSARTAN POTASSIUM) [Concomitant]
  12. METFORMIN(METFORMIN) [Concomitant]
  13. MULTIVITAMIN W/IRON(ERGOCALCIFEROL, ASCORBIC ACID, PHYRIDOXINE HYDROCHLORIDE, THIAMINE HYDROCHLORIDE, CYANOCOBALAMIN, RETINOL, RIBOFLAVIN, NICOTINAMIDE, STREPTONIAZIDE, PHOSPHOURUS) [Concomitant]
  14. ODANSETRON(OANDASETRON) [Concomitant]
  15. POTASSIUM(POTASSIUM) [Concomitant]
  16. VITMAIN B12(VITMAIN B12 NOS) [Concomitant]

REACTIONS (2)
  - Stomatitis [None]
  - Neutropenia [None]
